FAERS Safety Report 13273926 (Version 1)
Quarter: 2017Q1

REPORT INFORMATION
  Report Type: Spontaneous
  Country: FR (occurrence: FR)
  Receive Date: 20170227
  Receipt Date: 20170227
  Transmission Date: 20170428
  Serious: Yes (Hospitalization)
  Sender: FDA-Public Use
  Company Number: FR-009507513-1702FRA010892

PATIENT
  Sex: Male

DRUGS (7)
  1. GLIMEPIRIDE. [Suspect]
     Active Substance: GLIMEPIRIDE
     Indication: TYPE 2 DIABETES MELLITUS
     Dosage: 4 MG, QD
     Route: 048
     Dates: end: 20170123
  2. ODRIK [Concomitant]
     Active Substance: TRANDOLAPRIL
     Dosage: 4MG IN THE MORNING
  3. NEBIVOLOL. [Concomitant]
     Active Substance: NEBIVOLOL
     Dosage: 5 MG, QAM
  4. JANUMET [Suspect]
     Active Substance: METFORMIN HYDROCHLORIDE\SITAGLIPTIN PHOSPHATE
     Dosage: 2 DF (1 DF, 2 PER DAY)
     Route: 048
  5. KARDEGIC [Concomitant]
     Active Substance: ASPIRIN LYSINE
     Dosage: 1 SACHET AT LUNCH
  6. TAHOR [Concomitant]
     Active Substance: ATORVASTATIN CALCIUM
     Dosage: 80 MG IN THE EVENING
  7. PROCORALAN [Concomitant]
     Active Substance: IVABRADINE
     Dosage: 7.5 MG IN THE MORNING AND IN THE EVENING

REACTIONS (2)
  - Hypoglycaemia [Recovered/Resolved]
  - Malaise [Recovered/Resolved]
